FAERS Safety Report 4747231-9 (Version None)
Quarter: 2005Q3

REPORT INFORMATION
  Report Type: 
  Country: None (occurrence: None)
  Receive Date: 20050815
  Receipt Date: 20050803
  Transmission Date: 20060218
  Serious: Yes (Other)
  Sender: FDA-Public Use
  Company Number: 2005110299

PATIENT
  Age: 44 Year
  Sex: Female
  Weight: 81.8 kg

DRUGS (2)
  1. AROMASIN [Suspect]
     Indication: BREAST CANCER
     Dosage: 25 MG (25 MG, DAILY), ORAL
     Route: 048
     Dates: start: 20041229, end: 20050621
  2. TRIPTORELIN (TRIPTORELIN) [Suspect]
     Indication: BREAST CANCER
     Dosage: 3.75 MG (3.75 MG, EVERY 28 DAYS), INTRAMUSCULAR
     Route: 030
     Dates: start: 20041229, end: 20050517

REACTIONS (3)
  - LYMPHOEDEMA [None]
  - PERIPHERAL SENSORY NEUROPATHY [None]
  - SPINAL OSTEOARTHRITIS [None]
